FAERS Safety Report 5171360-1 (Version None)
Quarter: 2006Q4

REPORT INFORMATION
  Report Type: 
  Country: None (occurrence: None)
  Receive Date: 20061213
  Receipt Date: 20061004
  Transmission Date: 20070319
  Serious: Yes (Other)
  Sender: FDA-Public Use
  Company Number: US-AMGEN-US195703

PATIENT
  Sex: Male
  Weight: 92.6 kg

DRUGS (1)
  1. ENBREL [Suspect]
     Indication: PSORIASIS
     Route: 058
     Dates: start: 20040212, end: 20060928

REACTIONS (1)
  - MALIGNANT MELANOMA [None]
